FAERS Safety Report 4649500-X (Version None)
Quarter: 2005Q2

REPORT INFORMATION
  Report Type: 
  Country: None (occurrence: None)
  Receive Date: 20050331
  Receipt Date: 20041230
  Transmission Date: 20051028
  Serious: No
  Sender: FDA-Public Use
  Company Number: 05P-163-0285076-00

PATIENT
  Age: 78 Year
  Sex: Female
  Weight: 83.9154 kg

DRUGS (7)
  1. HUMIRA [Suspect]
     Indication: RHEUMATOID ARTHRITIS
     Dosage: 40 MG, 1 IN 2 WK, SUBCUTANEOUS
     Route: 058
     Dates: start: 20041201, end: 20041201
  2. RABEPRAZOLE SODIUM [Concomitant]
  3. PREDNISONE TAB [Concomitant]
  4. RANITIDINE [Concomitant]
  5. METHOTREXATE [Concomitant]
  6. COZAAR [Concomitant]
  7. ASPIRIN [Concomitant]

REACTIONS (1)
  - SINUSITIS [None]
